FAERS Safety Report 8293969-9 (Version None)
Quarter: 2012Q2

REPORT INFORMATION
  Report Type: 
  Country: None (occurrence: None)
  Receive Date: 20120418
  Receipt Date: 20120416
  Transmission Date: 20120825
  Serious: Yes (Death, Other)
  Sender: FDA-Public Use
  Company Number: US-PFIZER INC-2012094500

PATIENT
  Sex: Female
  Weight: 59 kg

DRUGS (2)
  1. CELEBREX [Suspect]
     Indication: RHEUMATOID ARTHRITIS
     Dosage: 100 MG, 1X/DAY
     Route: 048
  2. CELEBREX [Suspect]
     Dosage: 200 MG, 1X/DAY
     Route: 048

REACTIONS (4)
  - RHEUMATOID ARTHRITIS [None]
  - DIABETES MELLITUS [None]
  - CARDIAC DISORDER [None]
  - OVERDOSE [None]
